FAERS Safety Report 5173270-2 (Version None)
Quarter: 2006Q4

REPORT INFORMATION
  Report Type: 
  Country: None (occurrence: None)
  Receive Date: 20061214
  Receipt Date: 20060622
  Transmission Date: 20070319
  Serious: Yes (Hospitalization, Other)
  Sender: FDA-Public Use
  Company Number: US-AVENTIS-200615398US

PATIENT
  Sex: Male

DRUGS (9)
  1. LANTUS [Suspect]
     Indication: DIABETES MELLITUS INSULIN-DEPENDENT
     Dates: start: 20030101
  2. OPTICLIK (INSULIN INJECTION PEN) [Suspect]
     Indication: DIABETES MELLITUS INSULIN-DEPENDENT
     Dates: start: 20060601
  3. PLAVIX [Concomitant]
     Dosage: DOSE: UNK
  4. ASPIRIN [Concomitant]
     Dosage: DOSE: UNK
  5. ALTACE [Concomitant]
     Dosage: DOSE: UNK
  6. HUMALOG [Concomitant]
     Dosage: DOSE: UNK
  7. ZOCOR [Concomitant]
     Dosage: DOSE: UNK
  8. METOPROLOL SUCCINATE [Concomitant]
     Dosage: DOSE: UNK
  9. FOLIC ACID [Concomitant]
     Dosage: DOSE: UNK

REACTIONS (3)
  - CARDIAC OPERATION [None]
  - HYPERGLYCAEMIA [None]
  - PHARMACEUTICAL PRODUCT COMPLAINT [None]
